FAERS Safety Report 18835948 (Version 2)
Quarter: 2022Q1

REPORT INFORMATION
  Report Type: Spontaneous
  Country: US (occurrence: US)
  Receive Date: 20210203
  Receipt Date: 20220127
  Transmission Date: 20220423
  Serious: No
  Sender: FDA-Public Use
  Company Number: US-ALLERGAN-2047261US

PATIENT
  Age: 7 Decade
  Sex: Female

DRUGS (3)
  1. BOTOX [Suspect]
     Active Substance: ONABOTULINUMTOXINA
     Indication: Muscle spasms
     Dosage: 10-15 UNITS
  2. BOTOX [Suspect]
     Active Substance: ONABOTULINUMTOXINA
     Indication: Torticollis
     Dosage: 75-80 UNITS
  3. BOTOX [Suspect]
     Active Substance: ONABOTULINUMTOXINA
     Indication: Myalgia

REACTIONS (2)
  - Off label use [Unknown]
  - Drug ineffective [Unknown]
